FAERS Safety Report 8858499 (Version 2)
Quarter: 2013Q1

REPORT INFORMATION
  Report Type: Report from Study
  Country: JP (occurrence: JP)
  Receive Date: 20121024
  Receipt Date: 20130314
  Transmission Date: 20140127
  Serious: Yes (Other)
  Sender: FDA-Public Use
  Company Number: JP-ROCHE-1148178

PATIENT
  Age: 85 Year
  Sex: Male

DRUGS (4)
  1. RANIBIZUMAB [Suspect]
     Indication: AGE-RELATED MACULAR DEGENERATION
     Route: 050
     Dates: start: 20090710
  2. VISUDYNE [Concomitant]
     Route: 065
     Dates: start: 200810, end: 200903
  3. CRAVIT [Concomitant]
     Route: 065
     Dates: start: 200907, end: 201107
  4. GATIFLO [Concomitant]
     Route: 065

REACTIONS (3)
  - Oedema [Unknown]
  - Myocardial infarction [Unknown]
  - Macular oedema [Recovered/Resolved]
